FAERS Safety Report 4518365-9 (Version None)
Quarter: 2004Q4

REPORT INFORMATION
  Report Type: 
  Country: None (occurrence: None)
  Receive Date: 20041029
  Receipt Date: 20040924
  Transmission Date: 20050328
  Serious: Yes (Hospitalization)
  Sender: FDA-Public Use
  Company Number: 200417293US

PATIENT
  Sex: Female

DRUGS (2)
  1. KETEK [Suspect]
  2. CHEMOTHERAPY [Concomitant]

REACTIONS (1)
  - ANAPHYLACTIC REACTION [None]
